FAERS Safety Report 12766687 (Version 1)
Quarter: 2016Q3

REPORT INFORMATION
  Report Type: Spontaneous
  Country: GB (occurrence: GB)
  Receive Date: 20160921
  Receipt Date: 20160921
  Transmission Date: 20161109
  Serious: Yes (Disabling, Other)
  Sender: FDA-Public Use
  Company Number: GB-SUN PHARMACEUTICAL INDUSTRIES LTD-2016RR-118026

PATIENT
  Age: 30 Year
  Sex: Female
  Weight: 80 kg

DRUGS (1)
  1. FLUOXETINE [Suspect]
     Active Substance: FLUOXETINE HYDROCHLORIDE
     Indication: DEPRESSION
     Dosage: VARIOUS
     Route: 048
     Dates: start: 20071201, end: 201603

REACTIONS (1)
  - Anorgasmia [Not Recovered/Not Resolved]

NARRATIVE: CASE EVENT DATE: 20110501
